FAERS Safety Report 25717487 (Version 1)
Quarter: 2025Q3

REPORT INFORMATION
  Report Type: Spontaneous
  Country: CA (occurrence: CA)
  Receive Date: 20250822
  Receipt Date: 20250822
  Transmission Date: 20251021
  Serious: Yes (Death, Other)
  Sender: SANDOZ
  Company Number: CA-SANDOZ-SDZ2025CA060362

PATIENT
  Sex: Female

DRUGS (213)
  1. ADALIMUMAB [Suspect]
     Active Substance: ADALIMUMAB
     Indication: Product used for unknown indication
     Route: 042
  2. ADALIMUMAB [Suspect]
     Active Substance: ADALIMUMAB
     Route: 048
  3. ADALIMUMAB [Suspect]
     Active Substance: ADALIMUMAB
     Route: 058
  4. ADALIMUMAB [Suspect]
     Active Substance: ADALIMUMAB
     Route: 058
  5. ALENDRONIC ACID [Suspect]
     Active Substance: ALENDRONIC ACID
     Indication: Product used for unknown indication
     Route: 016
  6. ALENDRONIC ACID [Suspect]
     Active Substance: ALENDRONIC ACID
     Route: 016
  7. ALENDRONIC ACID [Suspect]
     Active Substance: ALENDRONIC ACID
     Route: 048
  8. APREMILAST [Suspect]
     Active Substance: APREMILAST
     Indication: Product used for unknown indication
     Dosage: 6 MG, QD
     Route: 065
  9. ACETAMINOPHEN [Suspect]
     Active Substance: ACETAMINOPHEN
     Route: 065
  10. ACETAMINOPHEN [Suspect]
     Active Substance: ACETAMINOPHEN
     Indication: Product used for unknown indication
     Route: 065
  11. ALENDRONATE SODIUM [Suspect]
     Active Substance: ALENDRONATE SODIUM
     Route: 016
  12. ALENDRONATE SODIUM [Suspect]
     Active Substance: ALENDRONATE SODIUM
     Route: 016
  13. ALENDRONATE SODIUM [Suspect]
     Active Substance: ALENDRONATE SODIUM
     Route: 048
  14. ALENDRONATE SODIUM [Suspect]
     Active Substance: ALENDRONATE SODIUM
     Indication: Product used for unknown indication
     Route: 065
  15. AMINOSALICYLIC ACID [Suspect]
     Active Substance: AMINOSALICYLIC ACID
     Indication: Product used for unknown indication
     Route: 065
  16. BIOFLAVONOIDS [Suspect]
     Active Substance: BIOFLAVONOIDS
     Indication: Product used for unknown indication
     Route: 065
  17. CELECOXIB [Suspect]
     Active Substance: CELECOXIB
     Dosage: 1 DF, QD
     Route: 065
  18. CELECOXIB [Suspect]
     Active Substance: CELECOXIB
     Indication: Product used for unknown indication
     Dosage: 2 DF, QD
     Route: 048
  19. CELECOXIB [Suspect]
     Active Substance: CELECOXIB
     Route: 058
  20. CELECOXIB [Suspect]
     Active Substance: CELECOXIB
     Route: 065
  21. CLONIDINE HYDROCHLORIDE [Suspect]
     Active Substance: CLONIDINE HYDROCHLORIDE
     Indication: Product used for unknown indication
     Route: 065
  22. CALCIUM [Suspect]
     Active Substance: CALCIUM
     Indication: Product used for unknown indication
     Route: 065
  23. CALCIUM CARBONATE [Suspect]
     Active Substance: CALCIUM CARBONATE
     Indication: Product used for unknown indication
     Route: 016
  24. CALCIUM CITRATE [Suspect]
     Active Substance: CALCIUM CITRATE
     Indication: Product used for unknown indication
     Route: 065
  25. CALCIUM GLUBIONATE [Suspect]
     Active Substance: CALCIUM GLUBIONATE
     Indication: Product used for unknown indication
     Route: 009
  26. CERTOLIZUMAB PEGOL [Suspect]
     Active Substance: CERTOLIZUMAB PEGOL
     Indication: Product used for unknown indication
     Route: 058
  27. CETIRIZINE [Suspect]
     Active Substance: CETIRIZINE HYDROCHLORIDE
     Dosage: 10 MG, QD
     Route: 048
  28. CETIRIZINE [Suspect]
     Active Substance: CETIRIZINE HYDROCHLORIDE
     Indication: Product used for unknown indication
     Route: 065
  29. CETIRIZINE [Suspect]
     Active Substance: CETIRIZINE HYDROCHLORIDE
     Route: 065
  30. CETIRIZINE [Suspect]
     Active Substance: CETIRIZINE HYDROCHLORIDE
     Route: 048
  31. CHLORHEXIDINE [Suspect]
     Active Substance: CHLORHEXIDINE
     Indication: Product used for unknown indication
     Route: 002
  32. CHLORHEXIDINE GLUCONATE\ISOPROPYL ALCOHOL [Suspect]
     Active Substance: CHLORHEXIDINE GLUCONATE\ISOPROPYL ALCOHOL
     Route: 048
  33. CHLORHEXIDINE GLUCONATE\ISOPROPYL ALCOHOL [Suspect]
     Active Substance: CHLORHEXIDINE GLUCONATE\ISOPROPYL ALCOHOL
     Indication: Product used for unknown indication
     Route: 065
  34. CIMZIA [Suspect]
     Active Substance: CERTOLIZUMAB PEGOL
     Indication: Product used for unknown indication
     Dosage: 1 DF, QD
     Route: 058
  35. CIMZIA [Suspect]
     Active Substance: CERTOLIZUMAB PEGOL
     Route: 058
  36. CIMZIA [Suspect]
     Active Substance: CERTOLIZUMAB PEGOL
     Route: 058
  37. CORTISONE [Suspect]
     Active Substance: CORTISONE
     Indication: Product used for unknown indication
     Route: 065
  38. CORTISONE ACETATE [Suspect]
     Active Substance: CORTISONE ACETATE
     Route: 003
  39. CORTISONE ACETATE [Suspect]
     Active Substance: CORTISONE ACETATE
     Indication: Product used for unknown indication
     Route: 065
  40. DICLOFENAC POTASSIUM [Suspect]
     Active Substance: DICLOFENAC POTASSIUM
     Indication: Product used for unknown indication
     Route: 065
  41. DICLOFENAC POTASSIUM [Suspect]
     Active Substance: DICLOFENAC POTASSIUM
     Route: 065
  42. DICLOFENAC SODIUM [Suspect]
     Active Substance: DICLOFENAC SODIUM
     Route: 065
  43. DICLOFENAC SODIUM [Suspect]
     Active Substance: DICLOFENAC SODIUM
     Route: 049
  44. DICLOFENAC SODIUM [Suspect]
     Active Substance: DICLOFENAC SODIUM
     Route: 065
  45. DICLOFENAC SODIUM [Suspect]
     Active Substance: DICLOFENAC SODIUM
     Dosage: 50 MG, QD
     Route: 065
  46. DICLOFENAC SODIUM [Suspect]
     Active Substance: DICLOFENAC SODIUM
     Indication: Product used for unknown indication
     Route: 065
  47. DICLOFENAC SODIUM [Suspect]
     Active Substance: DICLOFENAC SODIUM
     Route: 065
  48. DICLOFENAC SODIUM [Suspect]
     Active Substance: DICLOFENAC SODIUM
     Route: 058
  49. DICLOFENAC SODIUM [Suspect]
     Active Substance: DICLOFENAC SODIUM
     Route: 065
  50. DICLOFENAC SODIUM [Suspect]
     Active Substance: DICLOFENAC SODIUM
     Route: 065
  51. DICLOFENAC SODIUM [Suspect]
     Active Substance: DICLOFENAC SODIUM
     Route: 065
  52. DILTIAZEM HYDROCHLORIDE [Suspect]
     Active Substance: DILTIAZEM HYDROCHLORIDE
     Indication: Product used for unknown indication
     Route: 042
  53. DIPHENHYDRAMINE HYDROCHLORIDE [Suspect]
     Active Substance: DIPHENHYDRAMINE HYDROCHLORIDE
     Indication: Product used for unknown indication
     Route: 065
  54. DESOXIMETASONE [Suspect]
     Active Substance: DESOXIMETASONE
     Indication: Product used for unknown indication
     Route: 003
  55. DESOXIMETASONE [Suspect]
     Active Substance: DESOXIMETASONE
     Route: 048
  56. DESOXIMETASONE [Suspect]
     Active Substance: DESOXIMETASONE
     Route: 003
  57. DESOXIMETASONE [Suspect]
     Active Substance: DESOXIMETASONE
     Route: 048
  58. DICLOFENAC DIETHYLAMINE [Suspect]
     Active Substance: DICLOFENAC DIETHYLAMINE
     Route: 065
  59. DICLOFENAC DIETHYLAMINE [Suspect]
     Active Substance: DICLOFENAC DIETHYLAMINE
     Indication: Product used for unknown indication
     Route: 065
  60. DICLOFENAC DIETHYLAMINE [Suspect]
     Active Substance: DICLOFENAC DIETHYLAMINE
     Route: 065
  61. DOXYCYCLINE HYCLATE [Suspect]
     Active Substance: DOXYCYCLINE HYCLATE
     Indication: Product used for unknown indication
     Route: 065
  62. ERELZI [Suspect]
     Active Substance: ETANERCEPT-SZZS
     Indication: Product used for unknown indication
     Route: 058
  63. ERELZI [Suspect]
     Active Substance: ETANERCEPT-SZZS
     Route: 058
  64. SULFISOMIDINE [Suspect]
     Active Substance: SULFISOMIDINE
     Indication: Product used for unknown indication
     Route: 065
  65. ENBREL [Suspect]
     Active Substance: ETANERCEPT
     Dosage: 20 MG, QD
     Route: 058
  66. ENBREL [Suspect]
     Active Substance: ETANERCEPT
     Dosage: 20 MG, QD
     Route: 058
  67. ENBREL [Suspect]
     Active Substance: ETANERCEPT
     Dosage: 50 MG, QD
     Route: 058
  68. ENBREL [Suspect]
     Active Substance: ETANERCEPT
     Indication: Product used for unknown indication
     Route: 058
  69. ENTYVIO [Suspect]
     Active Substance: VEDOLIZUMAB
     Indication: Product used for unknown indication
     Route: 065
  70. FOLIC ACID [Suspect]
     Active Substance: FOLIC ACID
     Route: 065
  71. FOLIC ACID [Suspect]
     Active Substance: FOLIC ACID
     Dosage: 1 MG, QD
     Route: 048
  72. FOLIC ACID [Suspect]
     Active Substance: FOLIC ACID
     Route: 065
  73. FOLIC ACID [Suspect]
     Active Substance: FOLIC ACID
     Route: 065
  74. FOLIC ACID [Suspect]
     Active Substance: FOLIC ACID
     Indication: Product used for unknown indication
     Route: 048
  75. FOLIC ACID [Suspect]
     Active Substance: FOLIC ACID
     Route: 065
  76. FOLIC ACID [Suspect]
     Active Substance: FOLIC ACID
     Route: 048
  77. FOLIC ACID [Suspect]
     Active Substance: FOLIC ACID
     Route: 049
  78. FOLIC ACID [Suspect]
     Active Substance: FOLIC ACID
     Route: 065
  79. FOLIC ACID [Suspect]
     Active Substance: FOLIC ACID
     Route: 065
  80. FRAMYCETIN SULFATE [Suspect]
     Active Substance: FRAMYCETIN SULFATE
     Indication: Product used for unknown indication
     Route: 065
  81. GOLIMUMAB [Suspect]
     Active Substance: GOLIMUMAB
     Indication: Product used for unknown indication
     Route: 065
  82. GRAMICIDIN [Suspect]
     Active Substance: GRAMICIDIN
     Indication: Product used for unknown indication
     Route: 065
  83. HUMIRA [Suspect]
     Active Substance: ADALIMUMAB
     Route: 058
  84. HUMIRA [Suspect]
     Active Substance: ADALIMUMAB
     Indication: Product used for unknown indication
     Route: 058
  85. HUMIRA [Suspect]
     Active Substance: ADALIMUMAB
     Route: 058
  86. HUMIRA [Suspect]
     Active Substance: ADALIMUMAB
     Route: 058
  87. HYDROCORTISONE SODIUM SUCCINATE [Suspect]
     Active Substance: HYDROCORTISONE SODIUM SUCCINATE
     Route: 048
  88. HYDROCORTISONE SODIUM SUCCINATE [Suspect]
     Active Substance: HYDROCORTISONE SODIUM SUCCINATE
     Indication: Product used for unknown indication
     Route: 048
  89. HYDROXYCHLOROQUINE [Suspect]
     Active Substance: HYDROXYCHLOROQUINE
     Dosage: 40 MG, QD
     Route: 048
  90. HYDROXYCHLOROQUINE [Suspect]
     Active Substance: HYDROXYCHLOROQUINE
     Indication: Product used for unknown indication
     Dosage: 400 MG, QD
     Route: 048
  91. HYDROXYCHLOROQUINE [Suspect]
     Active Substance: HYDROXYCHLOROQUINE
     Dosage: 400 MG, QD
     Route: 048
  92. HYDROXYCHLOROQUINE [Suspect]
     Active Substance: HYDROXYCHLOROQUINE
     Route: 048
  93. HYDROXYCHLOROQUINE SULFATE [Suspect]
     Active Substance: HYDROXYCHLOROQUINE SULFATE
     Dosage: 40 MG, QD
     Route: 065
  94. HYDROXYCHLOROQUINE SULFATE [Suspect]
     Active Substance: HYDROXYCHLOROQUINE SULFATE
     Indication: Product used for unknown indication
     Dosage: 400 MG, QD
     Route: 048
  95. HYDROXYCHLOROQUINE SULFATE [Suspect]
     Active Substance: HYDROXYCHLOROQUINE SULFATE
     Dosage: 400 MG, QD
     Route: 048
  96. HYDROXYCHLOROQUINE SULFATE [Suspect]
     Active Substance: HYDROXYCHLOROQUINE SULFATE
     Dosage: 400 MG, QD
     Route: 065
  97. HYDROXYCHLOROQUINE SULFATE [Suspect]
     Active Substance: HYDROXYCHLOROQUINE SULFATE
     Route: 048
  98. HYDROXYCHLOROQUINE SULFATE [Suspect]
     Active Substance: HYDROXYCHLOROQUINE SULFATE
     Route: 065
  99. HYDROXYCHLOROQUINE SULFATE [Suspect]
     Active Substance: HYDROXYCHLOROQUINE SULFATE
     Dosage: 4000 MG, QD
     Route: 049
  100. HYDROXYCHLOROQUINE SULFATE [Suspect]
     Active Substance: HYDROXYCHLOROQUINE SULFATE
     Route: 048
  101. IMURAN [Suspect]
     Active Substance: AZATHIOPRINE
     Indication: Product used for unknown indication
     Route: 065
  102. INFLIXIMAB [Suspect]
     Active Substance: INFLIXIMAB
     Indication: Product used for unknown indication
     Route: 065
  103. INFLIXIMAB [Suspect]
     Active Substance: INFLIXIMAB
     Route: 042
  104. ISOPROPYL ALCOHOL [Suspect]
     Active Substance: ISOPROPYL ALCOHOL
     Indication: Product used for unknown indication
     Route: 048
  105. METHOTREXATE [Suspect]
     Active Substance: METHOTREXATE
     Dosage: 15 MG, QD
     Route: 048
  106. METHOTREXATE [Suspect]
     Active Substance: METHOTREXATE
     Route: 048
  107. METHOTREXATE [Suspect]
     Active Substance: METHOTREXATE
     Route: 048
  108. METHOTREXATE [Suspect]
     Active Substance: METHOTREXATE
     Dosage: 20 MG, QD
     Route: 058
  109. METHOTREXATE [Suspect]
     Active Substance: METHOTREXATE
     Dosage: 20 MG, QD
     Route: 065
  110. METHOTREXATE [Suspect]
     Active Substance: METHOTREXATE
     Dosage: 20 MG, QD
     Route: 065
  111. METHOTREXATE [Suspect]
     Active Substance: METHOTREXATE
     Route: 013
  112. METHOTREXATE [Suspect]
     Active Substance: METHOTREXATE
     Route: 048
  113. METHOTREXATE [Suspect]
     Active Substance: METHOTREXATE
     Route: 048
  114. METHOTREXATE [Suspect]
     Active Substance: METHOTREXATE
     Route: 048
  115. METHOTREXATE [Suspect]
     Active Substance: METHOTREXATE
     Route: 065
  116. METHOTREXATE [Suspect]
     Active Substance: METHOTREXATE
     Dosage: 25 MG, QD
     Route: 048
  117. METHOTREXATE [Suspect]
     Active Substance: METHOTREXATE
     Route: 013
  118. METHOTREXATE [Suspect]
     Active Substance: METHOTREXATE
     Route: 013
  119. METHOTREXATE [Suspect]
     Active Substance: METHOTREXATE
     Route: 058
  120. METHOTREXATE [Suspect]
     Active Substance: METHOTREXATE
     Route: 058
  121. METHOTREXATE [Suspect]
     Active Substance: METHOTREXATE
     Route: 048
  122. METHOTREXATE [Suspect]
     Active Substance: METHOTREXATE
     Route: 048
  123. METHOTREXATE [Suspect]
     Active Substance: METHOTREXATE
     Indication: Product used for unknown indication
     Route: 016
  124. METHOTREXATE [Suspect]
     Active Substance: METHOTREXATE
     Route: 048
  125. MORPHINE SULFATE [Suspect]
     Active Substance: MORPHINE SULFATE
     Indication: Product used for unknown indication
     Route: 065
  126. MYCOPHENOLATE MOFETIL [Suspect]
     Active Substance: MYCOPHENOLATE MOFETIL
     Indication: Product used for unknown indication
     Route: 065
  127. MESALAMINE [Suspect]
     Active Substance: MESALAMINE
     Indication: Product used for unknown indication
     Route: 065
  128. METHYLPREDNISOLONE SODIUM SUCCINATE [Suspect]
     Active Substance: METHYLPREDNISOLONE SODIUM SUCCINATE
     Indication: Product used for unknown indication
     Route: 048
  129. NAPROXEN SODIUM [Suspect]
     Active Substance: NAPROXEN SODIUM
     Indication: Product used for unknown indication
     Dosage: 1000 MG, QD
     Route: 065
  130. NAPROXEN SODIUM [Suspect]
     Active Substance: NAPROXEN SODIUM
     Dosage: 1000 MG, QD
     Route: 065
  131. NITROFURAZONE [Suspect]
     Active Substance: NITROFURAZONE
     Indication: Product used for unknown indication
     Route: 048
  132. NITROFURAZONE [Suspect]
     Active Substance: NITROFURAZONE
     Route: 048
  133. OXYCODONE [Suspect]
     Active Substance: OXYCODONE
     Indication: Product used for unknown indication
     Route: 065
  134. OXYCODONE [Suspect]
     Active Substance: OXYCODONE
     Route: 065
  135. ORENCIA [Suspect]
     Active Substance: ABATACEPT
     Route: 058
  136. ORENCIA [Suspect]
     Active Substance: ABATACEPT
     Dosage: 125 MG, QW
     Route: 058
  137. ORENCIA [Suspect]
     Active Substance: ABATACEPT
     Route: 058
  138. ORENCIA [Suspect]
     Active Substance: ABATACEPT
     Dosage: 17.88 MG, QD
     Route: 042
  139. ORENCIA [Suspect]
     Active Substance: ABATACEPT
     Dosage: 17.88 MG, QD
     Route: 065
  140. ORENCIA [Suspect]
     Active Substance: ABATACEPT
     Dosage: 18 MG, QD
     Route: 065
  141. ORENCIA [Suspect]
     Active Substance: ABATACEPT
     Indication: Product used for unknown indication
     Route: 042
  142. ORENCIA [Suspect]
     Active Substance: ABATACEPT
     Route: 042
  143. ORENCIA [Suspect]
     Active Substance: ABATACEPT
     Route: 053
  144. ORENCIA [Suspect]
     Active Substance: ABATACEPT
     Route: 042
  145. ORENCIA [Suspect]
     Active Substance: ABATACEPT
     Route: 058
  146. ORENCIA [Suspect]
     Active Substance: ABATACEPT
     Route: 065
  147. ORENCIA [Suspect]
     Active Substance: ABATACEPT
     Route: 065
  148. OTEZLA [Suspect]
     Active Substance: APREMILAST
     Route: 048
  149. OTEZLA [Suspect]
     Active Substance: APREMILAST
     Indication: Product used for unknown indication
     Route: 065
  150. OTEZLA [Suspect]
     Active Substance: APREMILAST
     Route: 065
  151. OTEZLA [Suspect]
     Active Substance: APREMILAST
     Dosage: 6 MG, QD
     Route: 048
  152. OTEZLA [Suspect]
     Active Substance: APREMILAST
     Dosage: 6 MG, QD
     Route: 065
  153. OXYCODONE TEREPHTHALATE [Suspect]
     Active Substance: OXYCODONE TEREPHTHALATE
     Indication: Product used for unknown indication
     Route: 065
  154. PREGABALIN [Suspect]
     Active Substance: PREGABALIN
     Indication: Product used for unknown indication
     Route: 065
  155. PREGABALIN [Suspect]
     Active Substance: PREGABALIN
     Indication: Product used for unknown indication
     Route: 065
  156. PANTOPRAZOLE SODIUM ANHYDROUS [Suspect]
     Active Substance: PANTOPRAZOLE SODIUM ANHYDROUS
     Indication: Product used for unknown indication
     Route: 016
  157. PANTOPRAZOLE SODIUM ANHYDROUS [Suspect]
     Active Substance: PANTOPRAZOLE SODIUM ANHYDROUS
     Route: 016
  158. PARA-AMINOSALICYLIC ACID [Suspect]
     Active Substance: AMINOSALICYLIC ACID
     Indication: Product used for unknown indication
     Route: 065
  159. PHTHALYLSULFATHIAZOLE [Suspect]
     Active Substance: PHTHALYLSULFATHIAZOLE
     Dosage: 1000 MG, QD
     Route: 048
  160. PHTHALYLSULFATHIAZOLE [Suspect]
     Active Substance: PHTHALYLSULFATHIAZOLE
     Dosage: 1000 MG, QD
     Route: 048
  161. PHTHALYLSULFATHIAZOLE [Suspect]
     Active Substance: PHTHALYLSULFATHIAZOLE
     Dosage: 2000 MG, QD
     Route: 048
  162. PHTHALYLSULFATHIAZOLE [Suspect]
     Active Substance: PHTHALYLSULFATHIAZOLE
     Dosage: 2000 MG, QD
     Route: 048
  163. PHTHALYLSULFATHIAZOLE [Suspect]
     Active Substance: PHTHALYLSULFATHIAZOLE
     Indication: Product used for unknown indication
     Dosage: 2000 MG, QD
     Route: 058
  164. PHTHALYLSULFATHIAZOLE [Suspect]
     Active Substance: PHTHALYLSULFATHIAZOLE
     Route: 065
  165. PHTHALYLSULFATHIAZOLE [Suspect]
     Active Substance: PHTHALYLSULFATHIAZOLE
     Route: 048
  166. PHTHALYLSULFATHIAZOLE [Suspect]
     Active Substance: PHTHALYLSULFATHIAZOLE
     Route: 016
  167. PREDNISONE [Suspect]
     Active Substance: PREDNISONE
     Route: 065
  168. PREDNISONE [Suspect]
     Active Substance: PREDNISONE
     Indication: Product used for unknown indication
     Route: 048
  169. PREDNISONE [Suspect]
     Active Substance: PREDNISONE
     Route: 048
  170. PREDNISONE [Suspect]
     Active Substance: PREDNISONE
     Route: 065
  171. PREDNISONE [Suspect]
     Active Substance: PREDNISONE
     Route: 048
  172. PREDNISONE [Suspect]
     Active Substance: PREDNISONE
     Route: 048
  173. PREDNISONE [Suspect]
     Active Substance: PREDNISONE
     Route: 048
  174. PSEUDOEPHEDRINE [Suspect]
     Active Substance: PSEUDOEPHEDRINE
     Indication: Product used for unknown indication
     Route: 065
  175. QUETIAPINE FUMARATE [Suspect]
     Active Substance: QUETIAPINE FUMARATE
     Indication: Product used for unknown indication
     Route: 065
  176. SALICYLIC ACID [Suspect]
     Active Substance: SALICYLIC ACID
     Indication: Product used for unknown indication
     Route: 065
  177. SODIUM FLUORIDE [Suspect]
     Active Substance: SODIUM FLUORIDE
     Indication: Product used for unknown indication
     Route: 065
  178. SULFAMETHOXAZOLE AND TRIMETHOPRIM [Suspect]
     Active Substance: SULFAMETHOXAZOLE\TRIMETHOPRIM
     Indication: Product used for unknown indication
     Route: 067
  179. SULFAMETHOXAZOLE AND TRIMETHOPRIM [Suspect]
     Active Substance: SULFAMETHOXAZOLE\TRIMETHOPRIM
     Route: 067
  180. SULFASALAZINE [Suspect]
     Active Substance: SULFASALAZINE
     Route: 058
  181. SULFASALAZINE [Suspect]
     Active Substance: SULFASALAZINE
     Route: 058
  182. SULFASALAZINE [Suspect]
     Active Substance: SULFASALAZINE
     Route: 058
  183. SULFASALAZINE [Suspect]
     Active Substance: SULFASALAZINE
     Route: 058
  184. SULFASALAZINE [Suspect]
     Active Substance: SULFASALAZINE
     Dosage: 2000 MG, QD
     Route: 048
  185. SULFASALAZINE [Suspect]
     Active Substance: SULFASALAZINE
     Route: 058
  186. SULFASALAZINE [Suspect]
     Active Substance: SULFASALAZINE
     Indication: Product used for unknown indication
     Route: 058
  187. TRAMADOL HYDROCHLORIDE [Suspect]
     Active Substance: TRAMADOL HYDROCHLORIDE
     Indication: Product used for unknown indication
     Route: 065
  188. THYMOL [Suspect]
     Active Substance: THYMOL
     Route: 048
  189. THYMOL [Suspect]
     Active Substance: THYMOL
     Indication: Product used for unknown indication
     Route: 048
  190. TOCILIZUMAB [Suspect]
     Active Substance: TOCILIZUMAB
     Route: 042
  191. TOCILIZUMAB [Suspect]
     Active Substance: TOCILIZUMAB
     Route: 048
  192. TOCILIZUMAB [Suspect]
     Active Substance: TOCILIZUMAB
     Dosage: 2912 MG, QW
     Route: 042
  193. TOCILIZUMAB [Suspect]
     Active Substance: TOCILIZUMAB
     Route: 058
  194. TOCILIZUMAB [Suspect]
     Active Substance: TOCILIZUMAB
     Route: 016
  195. TOCILIZUMAB [Suspect]
     Active Substance: TOCILIZUMAB
     Indication: Product used for unknown indication
     Route: 058
  196. TOCILIZUMAB [Suspect]
     Active Substance: TOCILIZUMAB
     Dosage: 3011.2 MG, QW
     Route: 042
  197. TOCILIZUMAB [Suspect]
     Active Substance: TOCILIZUMAB
     Dosage: 728 MG, QW
     Route: 058
  198. TOCILIZUMAB [Suspect]
     Active Substance: TOCILIZUMAB
     Route: 042
  199. TOCILIZUMAB [Suspect]
     Active Substance: TOCILIZUMAB
     Dosage: 752 MG, QW
     Route: 065
  200. TOCILIZUMAB [Suspect]
     Active Substance: TOCILIZUMAB
     Route: 042
  201. TOCILIZUMAB [Suspect]
     Active Substance: TOCILIZUMAB
     Route: 058
  202. TOCILIZUMAB [Suspect]
     Active Substance: TOCILIZUMAB
     Route: 016
  203. TOFACITINIB CITRATE [Suspect]
     Active Substance: TOFACITINIB CITRATE
     Indication: Product used for unknown indication
     Dosage: 10 MG, QW
     Route: 065
  204. TRIAMCINOLONE ACETONIDE [Suspect]
     Active Substance: TRIAMCINOLONE ACETONIDE
     Indication: Product used for unknown indication
     Route: 014
  205. TRICLOSAN [Suspect]
     Active Substance: TRICLOSAN
     Indication: Product used for unknown indication
     Route: 065
  206. TYROTHRICIN [Suspect]
     Active Substance: TYROTHRICIN
     Route: 048
  207. TYROTHRICIN [Suspect]
     Active Substance: TYROTHRICIN
     Indication: Product used for unknown indication
     Route: 048
  208. USTEKINUMAB [Suspect]
     Active Substance: USTEKINUMAB
     Indication: Product used for unknown indication
     Route: 042
  209. VITAMIN D3 [Suspect]
     Active Substance: CHOLECALCIFEROL
     Route: 016
  210. VITAMIN D3 [Suspect]
     Active Substance: CHOLECALCIFEROL
     Route: 058
  211. VITAMIN D3 [Suspect]
     Active Substance: CHOLECALCIFEROL
     Indication: Product used for unknown indication
     Route: 065
  212. XELJANZ [Suspect]
     Active Substance: TOFACITINIB CITRATE
     Indication: Product used for unknown indication
     Dosage: 10 MG, QW
     Route: 048
  213. XELJANZ [Suspect]
     Active Substance: TOFACITINIB CITRATE
     Route: 048

REACTIONS (13)
  - Musculoskeletal stiffness [Fatal]
  - Nasopharyngitis [Fatal]
  - Nausea [Fatal]
  - Oedema [Fatal]
  - Oedema peripheral [Fatal]
  - Osteoporosis [Fatal]
  - Pain [Fatal]
  - Pain in extremity [Fatal]
  - Pemphigus [Fatal]
  - Pericarditis [Fatal]
  - Peripheral swelling [Fatal]
  - Pneumonia [Fatal]
  - Osteoarthritis [Fatal]
